FAERS Safety Report 13530224 (Version 1)
Quarter: 2017Q2

REPORT INFORMATION
  Report Type: Spontaneous
  Country: US (occurrence: US)
  Receive Date: 20170509
  Receipt Date: 20170509
  Transmission Date: 20170830
  Serious: No
  Sender: FDA-Public Use
  Company Number: US-UCBSA-2017001216

PATIENT
  Sex: Female

DRUGS (4)
  1. NEUPRO [Suspect]
     Active Substance: ROTIGOTINE
     Indication: OFF LABEL USE
  2. NEUPRO [Suspect]
     Active Substance: ROTIGOTINE
     Indication: RESTLESS LEGS SYNDROME
  3. NEUPRO [Suspect]
     Active Substance: ROTIGOTINE
     Indication: DYSKINESIA
     Dosage: UNK, ONCE DAILY (QD)
     Dates: start: 20170102
  4. IBUPROFEN. [Concomitant]
     Active Substance: IBUPROFEN
     Indication: DYSKINESIA
     Dosage: ONE TIME DOSE

REACTIONS (2)
  - Drug ineffective [Unknown]
  - Off label use [Unknown]

NARRATIVE: CASE EVENT DATE: 201701
